FAERS Safety Report 20043246 (Version 2)
Quarter: 2021Q4

REPORT INFORMATION
  Report Type: Other
  Country: GB (occurrence: GB)
  Receive Date: 20211108
  Receipt Date: 20211115
  Transmission Date: 20220304
  Serious: Yes (Other)
  Sender: FDA-Public Use
  Company Number: None

PATIENT

DRUGS (7)
  1. ROSUVASTATIN CALCIUM [Suspect]
     Active Substance: ROSUVASTATIN CALCIUM
     Indication: Ill-defined disorder
     Dosage: UNK
     Route: 065
     Dates: start: 20211027
  2. AMLODIPINE [Concomitant]
     Active Substance: AMLODIPINE BESYLATE
     Indication: Ill-defined disorder
     Dosage: 1 DOSAGE FORM, OD
     Route: 065
     Dates: start: 20210324
  3. LISINOPRIL [Concomitant]
     Active Substance: LISINOPRIL
     Indication: Ill-defined disorder
     Dosage: 1 DOSAGE FORM, OD
     Route: 065
     Dates: start: 20210324
  4. PRAVASTATIN [Concomitant]
     Active Substance: PRAVASTATIN
     Indication: Ill-defined disorder
     Dosage: 1 DOSAGE FORM, HS
     Route: 065
     Dates: start: 20210324, end: 20210825
  5. PREGABALIN [Concomitant]
     Active Substance: PREGABALIN
     Indication: Ill-defined disorder
     Dosage: 1 DOSAGE FORM, TID
     Route: 065
     Dates: start: 20211025
  6. ROSUVASTATIN [Concomitant]
     Active Substance: ROSUVASTATIN
     Indication: Ill-defined disorder
     Dosage: 1 DOSAGE FORM, OD
     Route: 065
     Dates: start: 20210824
  7. ACETAMINOPHEN\CODEINE PHOSPHATE [Concomitant]
     Active Substance: ACETAMINOPHEN\CODEINE PHOSPHATE
     Indication: Ill-defined disorder
     Dosage: UNK, BID (TAKE 1 OR 2 WHEN REQUIRED UP TO 2 TIMES/DAY)
     Route: 065
     Dates: start: 20210913, end: 20211011

REACTIONS (5)
  - Adverse drug reaction [Recovered/Resolved]
  - Abdominal distension [Recovered/Resolved]
  - Flatulence [Recovered/Resolved]
  - Abdominal pain [Recovered/Resolved]
  - Drug intolerance [Unknown]

NARRATIVE: CASE EVENT DATE: 20211027
